FAERS Safety Report 5019928-7 (Version None)
Quarter: 2006Q2

REPORT INFORMATION
  Report Type: 
  Country: None (occurrence: None)
  Receive Date: 20060607
  Receipt Date: 20060531
  Transmission Date: 20061013
  Serious: Yes (Death, Other)
  Sender: FDA-Public Use
  Company Number: JP-BRISTOL-MYERS SQUIBB COMPANY-13399712

PATIENT
  Age: 9 Month
  Sex: Male

DRUGS (8)
  1. VEPESID [Suspect]
     Indication: RETINOBLASTOMA BILATERAL
     Dates: start: 19990225, end: 19990501
  2. PARAPLATIN [Suspect]
     Indication: RETINOBLASTOMA BILATERAL
     Route: 041
     Dates: start: 19990225, end: 19990501
  3. CYCLOPHOSPHAMIDE [Suspect]
     Indication: RETINOBLASTOMA BILATERAL
     Dates: start: 19990225, end: 19990501
  4. IFOSFAMIDE [Suspect]
     Indication: RETINOBLASTOMA BILATERAL
     Dates: start: 19990601, end: 19990601
  5. PIRARUBICIN HCL [Suspect]
     Indication: RETINOBLASTOMA BILATERAL
     Dates: start: 19990225, end: 19990501
  6. MELPHALAN [Suspect]
     Indication: RETINOBLASTOMA BILATERAL
     Dates: start: 19990601, end: 19990601
  7. MABLIN [Suspect]
     Indication: RETINOBLASTOMA BILATERAL
     Route: 048
     Dates: start: 19991001, end: 19991001
  8. THIOTEPA [Suspect]
     Indication: RETINOBLASTOMA BILATERAL
     Dates: start: 19991001, end: 19991001

REACTIONS (3)
  - BONE SARCOMA [None]
  - DYSPNOEA [None]
  - TREATMENT RELATED SECONDARY MALIGNANCY [None]
